FAERS Safety Report 17398636 (Version 1)
Quarter: 2020Q1

REPORT INFORMATION
  Report Type: Spontaneous
  Country: US (occurrence: US)
  Receive Date: 20200210
  Receipt Date: 20200210
  Transmission Date: 20200409
  Serious: Yes (Other)
  Sender: FDA-Public Use
  Company Number: US-SUNOVION-2020SUN000435

PATIENT
  Age: 20 Year
  Sex: Female

DRUGS (1)
  1. LATUDA [Suspect]
     Active Substance: LURASIDONE HYDROCHLORIDE
     Dosage: 20 MG
     Route: 048
     Dates: end: 20200202

REACTIONS (5)
  - Hallucination [Not Recovered/Not Resolved]
  - Therapy cessation [Unknown]
  - Loss of consciousness [Unknown]
  - Treatment noncompliance [Unknown]
  - Dizziness [Not Recovered/Not Resolved]

NARRATIVE: CASE EVENT DATE: 20200202
